FAERS Safety Report 7346222-1 (Version None)
Quarter: 2011Q1

REPORT INFORMATION
  Report Type: 
  Country: None (occurrence: None)
  Receive Date: 20110311
  Receipt Date: 20110309
  Transmission Date: 20110831
  Serious: Yes (Other)
  Sender: FDA-Public Use
  Company Number: US-PFIZER INC-2011052539

PATIENT
  Sex: Female

DRUGS (3)
  1. EFFEXOR XR [Suspect]
     Indication: DEPRESSION
     Dosage: 75 MG DAILY
     Route: 048
     Dates: start: 20101101, end: 20110101
  2. EFFEXOR XR [Suspect]
     Indication: CONVULSION
  3. EFFEXOR XR [Suspect]
     Indication: AGGRESSION

REACTIONS (1)
  - ABNORMAL BEHAVIOUR [None]
